FAERS Safety Report 12992531 (Version 1)
Quarter: 2016Q4

REPORT INFORMATION
  Report Type: Report from Study
  Country: NZ (occurrence: NZ)
  Receive Date: 20161202
  Receipt Date: 20161202
  Transmission Date: 20170207
  Serious: Yes (Other)
  Sender: FDA-Public Use
  Company Number: NZ-ROCHE-1859644

PATIENT

DRUGS (5)
  1. CYCLOPHOSPHAMIDE. [Suspect]
     Active Substance: CYCLOPHOSPHAMIDE
     Indication: NON-HODGKIN^S LYMPHOMA
     Dosage: DAY 1
     Route: 042
  2. RITUXIMAB [Suspect]
     Active Substance: RITUXIMAB
     Indication: NON-HODGKIN^S LYMPHOMA
     Dosage: DAY 1
     Route: 042
  3. VINCRISTINE [Suspect]
     Active Substance: VINCRISTINE
     Indication: NON-HODGKIN^S LYMPHOMA
     Dosage: DAY 1
     Route: 042
  4. PREDNISONE. [Suspect]
     Active Substance: PREDNISONE
     Indication: NON-HODGKIN^S LYMPHOMA
     Dosage: DAY 1 - 5
     Route: 048
  5. DOXORUBICIN [Suspect]
     Active Substance: DOXORUBICIN
     Indication: NON-HODGKIN^S LYMPHOMA
     Dosage: ON DAY 1
     Route: 042

REACTIONS (11)
  - Neuropathy peripheral [Unknown]
  - Infection [Unknown]
  - Gastrointestinal disorder [Unknown]
  - Anaemia [Unknown]
  - Febrile neutropenia [Unknown]
  - Thrombocytopenia [Unknown]
  - Metastasis [Unknown]
  - Cardiotoxicity [Unknown]
  - Neutropenia [Unknown]
  - Bone marrow failure [Unknown]
  - Drug intolerance [Unknown]
